FAERS Safety Report 5012979-8 (Version None)
Quarter: 2006Q2

REPORT INFORMATION
  Report Type: 
  Country: None (occurrence: None)
  Receive Date: 20060525
  Receipt Date: 20060512
  Transmission Date: 20061013
  Serious: Yes (Hospitalization)
  Sender: FDA-Public Use
  Company Number: 2006064531

PATIENT
  Age: 81 Year
  Sex: Female

DRUGS (16)
  1. FELDENE [Suspect]
     Indication: ILL-DEFINED DISORDER
     Dosage: 20 MG (20 MG, 1 IN 1 D) INTRAMUSCULAR
     Route: 030
     Dates: start: 20060215, end: 20060215
  2. STRONTIUM CHLORIDE (STRONTIUM CHLORIDE) [Suspect]
     Indication: ILL-DEFINED DISORDER
     Dosage: 2 GRAM (2 GRAM, 1 IN 1 D) ORAL
     Route: 048
     Dates: start: 20060218, end: 20060313
  3. CALSYN (CALCITONIN, SALMON) [Suspect]
     Indication: ILL-DEFINED DISORDER
     Dosage: 10 I.U. (10 I.U., IN IN 1 D)
     Dates: start: 20060218, end: 20060303
  4. DUPHALAC [Suspect]
     Indication: ILL-DEFINED DISORDER
     Dosage: 1 IN 1 D, ORAL
     Route: 048
     Dates: start: 20060302
  5. EVISTA [Suspect]
     Indication: ILL-DEFINED DISORDER
     Dosage: 1 IN 1 D, ORAL
     Route: 048
     Dates: start: 20031215, end: 20060217
  6. MORPHINE SULFATE [Suspect]
     Indication: ILL-DEFINED DISORDER
     Dosage: 40 MG (10 MG, 1 IN 1 D) ORAL
     Route: 048
     Dates: start: 20060224
  7. BETAMETHASONE [Concomitant]
  8. SPECIAFOLDIN (FOLIC ACID) [Concomitant]
  9. ESBERIVEN FORTE (MELILOT, RUTOSIDE) [Concomitant]
  10. FUROSEMIDE [Concomitant]
  11. FENOFIBRATE [Concomitant]
  12. BISOPROLOL FUMARATE [Concomitant]
  13. LORAZEPAM [Concomitant]
  14. CACIT (CALCIUM CARBONATE, CITRIC ACID) [Concomitant]
  15. PREDNISONE [Concomitant]
  16. METHOTREXATE [Concomitant]

REACTIONS (2)
  - DEEP VEIN THROMBOSIS [None]
  - PULMONARY EMBOLISM [None]
